FAERS Safety Report 9169125 (Version 1)
Quarter: 2013Q1

REPORT INFORMATION
  Report Type: Spontaneous
  Country: US (occurrence: None)
  Receive Date: 20130308
  Receipt Date: 20130308
  Transmission Date: 20140127
  Serious: Yes (Hospitalization)
  Sender: FDA-Public Use
  Company Number: 2013-000088

PATIENT
  Age: 67 Year
  Sex: Female
  Weight: 69.4 kg

DRUGS (6)
  1. ATELVIA (RISEDRONATE SODIUM EDETATE DISODIUM) TABLET, 35MG [Suspect]
     Indication: OSTEOPENIA
     Dosage: ONCE WEEKLY
     Route: 048
     Dates: start: 20130104
  2. ATELVIA (RISEDRONATE SODIUM EDETATE DISODIUM) TABLET, 35MG [Suspect]
     Indication: OSTEOPOROSIS
     Dosage: ONCE WEEKLY
     Route: 048
     Dates: start: 20130104
  3. MULTIVIT (VITAMINS NOS) [Concomitant]
  4. CALCIUM (CALCIUM) [Concomitant]
  5. GLUCOSAMINE + CHONDROITIN /01625901/ (CHONDROITIN SULFATE, GLUCOSAMINE) [Concomitant]
  6. TYLENOL ARTHRITIS (PARACETAMOL) [Concomitant]

REACTIONS (11)
  - Bursitis [None]
  - Joint swelling [None]
  - Myositis [None]
  - Chills [None]
  - Nausea [None]
  - Dyspnoea [None]
  - Paraesthesia [None]
  - Pain [None]
  - Musculoskeletal pain [None]
  - Nodule [None]
  - Drug hypersensitivity [None]
